FAERS Safety Report 13691402 (Version 1)
Quarter: 2017Q2

REPORT INFORMATION
  Report Type: Spontaneous
  Country: US (occurrence: US)
  Receive Date: 20170626
  Receipt Date: 20170626
  Transmission Date: 20170830
  Serious: No
  Sender: FDA-Public Use
  Company Number: US-ROCHE-1925742

PATIENT
  Age: 79 Year
  Sex: Male

DRUGS (6)
  1. TENECTEPLASE [Suspect]
     Active Substance: TENECTEPLASE
     Indication: PULMONARY EMBOLISM
     Dosage: OVER 5 SECONDS
     Route: 040
  2. EPINEPHRINE. [Concomitant]
     Active Substance: EPINEPHRINE
  3. PROCAINAMIDE [Concomitant]
     Active Substance: PROCAINAMIDE HYDROCHLORIDE
  4. LIDOCAINE. [Concomitant]
     Active Substance: LIDOCAINE
  5. ATROPINE. [Concomitant]
     Active Substance: ATROPINE
  6. WARFARIN [Concomitant]
     Active Substance: WARFARIN
     Route: 065

REACTIONS (2)
  - Off label use [Unknown]
  - No adverse event [Unknown]
